FAERS Safety Report 7616065 (Version 2)
Quarter: 2013Q4

REPORT INFORMATION
  Report Type: Report from Study
  Country: JP (occurrence: JP)
  Receive Date: 20101004
  Receipt Date: 20131121
  Transmission Date: 20140711
  Serious: Yes (Congenital Anomaly, Other)
  Sender: FDA-Public Use
  Company Number: JP-ROCHE-729499

PATIENT
  Sex: Male

DRUGS (1)
  1. OSELTAMIVIR [Suspect]
     Indication: INFLUENZA
     Route: 064
     Dates: start: 20100103, end: 20100107

REACTIONS (5)
  - Abdominal distension [Unknown]
  - Haemangioma [Unknown]
  - Exposure during pregnancy [Unknown]
  - Normal newborn [Unknown]
  - Spina bifida occulta [Unknown]
